FAERS Safety Report 8141656-X (Version None)
Quarter: 2012Q1

REPORT INFORMATION
  Report Type: 
  Country: None (occurrence: None)
  Receive Date: 20120216
  Receipt Date: 20120214
  Transmission Date: 20120608
  Serious: Yes (Other)
  Sender: FDA-Public Use
  Company Number: JP-B.I. PHARMACEUTICALS,INC./RIDGEFIELD-2011-BP-26848NB

PATIENT
  Sex: Male
  Weight: 56.5 kg

DRUGS (9)
  1. CILNIDIPINE [Concomitant]
     Indication: CARDIAC FAILURE CHRONIC
     Dosage: 10 MG
     Route: 048
     Dates: end: 20110722
  2. OMEPRAZOLE [Concomitant]
     Dosage: 10 MG
     Route: 048
     Dates: end: 20110722
  3. PRADAXA [Suspect]
     Indication: ATRIAL FIBRILLATION
     Dosage: 220 MG
     Route: 048
     Dates: start: 20110701
  4. ASPIRIN [Suspect]
     Indication: VERTEBRAL ARTERY STENOSIS
     Dosage: 100 MG
     Route: 048
     Dates: start: 20071109
  5. OPALMON [Concomitant]
     Indication: CARDIAC FAILURE CHRONIC
     Dosage: 10 MCG
     Route: 048
     Dates: end: 20110722
  6. METHYCOBAL [Concomitant]
     Dosage: 1500 MCG
     Route: 048
     Dates: end: 20110722
  7. LASIX [Concomitant]
     Indication: CARDIAC FAILURE CHRONIC
     Dosage: 10 MG
     Route: 048
     Dates: end: 20110722
  8. BAYCARON [Concomitant]
     Indication: CARDIAC FAILURE CHRONIC
     Dosage: 12.5 MG
     Route: 048
     Dates: end: 20110722
  9. MICARDIS [Concomitant]
     Indication: CARDIAC FAILURE CHRONIC
     Dosage: 20 MG
     Route: 048
     Dates: end: 20110722

REACTIONS (2)
  - RENAL IMPAIRMENT [None]
  - GASTRIC HAEMORRHAGE [None]
